FAERS Safety Report 12111633 (Version 1)
Quarter: 2016Q1

REPORT INFORMATION
  Report Type: Spontaneous
  Country: US (occurrence: US)
  Receive Date: 20160224
  Receipt Date: 20160224
  Transmission Date: 20160526
  Serious: No
  Sender: FDA-Public Use
  Company Number: US-JAZZ-2015-US-019728

PATIENT
  Sex: Female

DRUGS (8)
  1. CLONIDINE. [Suspect]
     Active Substance: CLONIDINE
     Indication: MUSCLE SPASTICITY
     Dosage: UNK ?G, QH
     Route: 037
  2. BACLOFEN. [Suspect]
     Active Substance: BACLOFEN
     Indication: SPINAL PAIN
  3. FENTANYL. [Suspect]
     Active Substance: FENTANYL
     Indication: SPINAL PAIN
  4. PRIALT [Suspect]
     Active Substance: ZICONOTIDE ACETATE
     Indication: MUSCLE SPASTICITY
     Dosage: UNK ?G, QH
     Route: 037
  5. BACLOFEN. [Suspect]
     Active Substance: BACLOFEN
     Indication: MUSCLE SPASTICITY
     Dosage: 25 ?G, QH
     Route: 037
  6. CLONIDINE. [Suspect]
     Active Substance: CLONIDINE
     Indication: SPINAL PAIN
  7. FENTANYL. [Suspect]
     Active Substance: FENTANYL
     Indication: MUSCLE SPASTICITY
     Dosage: UNK ?G, QH
     Route: 037
  8. PRIALT [Suspect]
     Active Substance: ZICONOTIDE ACETATE
     Indication: SPINAL PAIN

REACTIONS (3)
  - Cerebrospinal fluid leakage [Unknown]
  - Device issue [Unknown]
  - Drug ineffective [Unknown]
